FAERS Safety Report 8407778-0 (Version None)
Quarter: 2012Q2

REPORT INFORMATION
  Report Type: 
  Country: None (occurrence: None)
  Receive Date: 20120604
  Receipt Date: 20120530
  Transmission Date: 20120825
  Serious: Yes (Congenital Anomaly)
  Sender: FDA-Public Use
  Company Number: US-GLAXOSMITHKLINE-A0979873A

PATIENT
  Sex: Male
  Weight: 3 kg

DRUGS (2)
  1. PAXIL [Suspect]
     Indication: ANXIETY
     Dosage: 20MG PER DAY
     Route: 064
  2. BUSPAR [Concomitant]

REACTIONS (6)
  - TRACHEOMALACIA [None]
  - FOETAL EXPOSURE DURING PREGNANCY [None]
  - ATRIAL SEPTAL DEFECT [None]
  - CONGENITAL EMPHYSEMA [None]
  - PLAGIOCEPHALY [None]
  - PULMONARY HYPOPLASIA [None]
